FAERS Safety Report 20547033 (Version 1)
Quarter: 2022Q1

REPORT INFORMATION
  Report Type: Spontaneous
  Country: CN (occurrence: CN)
  Receive Date: 20220303
  Receipt Date: 20220303
  Transmission Date: 20220423
  Serious: Yes (Other)
  Sender: FDA-Public Use
  Company Number: CN-PFIZER INC-202200308157

PATIENT
  Age: 31 Year
  Sex: Female
  Weight: 92.8 kg

DRUGS (2)
  1. CARBOPROST TROMETHAMINE [Suspect]
     Active Substance: CARBOPROST TROMETHAMINE
     Indication: Uterine contractions abnormal
     Dosage: 0.25 UG, 1X/DAY
     Dates: start: 20220217, end: 20220217
  2. ERGONOVINE MALEATE [Concomitant]
     Active Substance: ERGONOVINE MALEATE
     Indication: Uterine contractions abnormal
     Dosage: 0.2 MG, 1X/DAY
     Dates: start: 20220217, end: 20220217

REACTIONS (5)
  - Chest discomfort [Recovering/Resolving]
  - Palpitations [Recovering/Resolving]
  - Chest pain [Recovering/Resolving]
  - Back pain [Recovering/Resolving]
  - Sinus arrhythmia [Recovering/Resolving]

NARRATIVE: CASE EVENT DATE: 20220217
